FAERS Safety Report 24865509 (Version 1)
Quarter: 2025Q1

REPORT INFORMATION
  Report Type: Spontaneous
  Country: US (occurrence: US)
  Receive Date: 20250121
  Receipt Date: 20250121
  Transmission Date: 20250409
  Serious: No
  Sender: ROCHE
  Company Number: US-ROCHE-10000183660

PATIENT
  Sex: Female

DRUGS (16)
  1. XOLAIR [Suspect]
     Active Substance: OMALIZUMAB
     Indication: Neck pain
     Route: 058
  2. Atorvastatin Pow [Concomitant]
  3. Metformin Hc Pow [Concomitant]
  4. Metocloprami Pow [Concomitant]
  5. Novolog Mix Sus(70-30) [Concomitant]
  6. Oxycodone Hc Pow [Concomitant]
  7. Tizanidine H Pow [Concomitant]
  8. Tresiba Sol 100 Unit/Ml [Concomitant]
  9. METHOCARBAMOL [Concomitant]
     Active Substance: METHOCARBAMOL
  10. Opana Tab 10 Mg [Concomitant]
  11. Albuterol Neb 0.083% [Concomitant]
  12. Amlodipine Tab 5 Mg [Concomitant]
  13. Azitromycin Tab 250 Mg [Concomitant]
  14. Benzonatate Cap 200 Mg [Concomitant]
  15. Cheratussin Syp 100-10/5 [Concomitant]
  16. Diazepam Tab 2 Mg [Concomitant]

REACTIONS (2)
  - Off label use [Unknown]
  - Depression [Unknown]
